FAERS Safety Report 7981499-0 (Version None)
Quarter: 2011Q4

REPORT INFORMATION
  Report Type: 
  Country: None (occurrence: None)
  Receive Date: 20111215
  Receipt Date: 20111207
  Transmission Date: 20120403
  Serious: Yes (Hospitalization)
  Sender: FDA-Public Use
  Company Number: FR-PFIZER INC-2011242443

PATIENT
  Age: 50 Year
  Sex: Male

DRUGS (7)
  1. MYCOPHENOLATE MOFETIL (CELLCEPT) [Suspect]
     Dosage: UNK
     Dates: start: 20110401, end: 20110912
  2. TACROLIMUS [Suspect]
     Dosage: UNK
     Route: 048
     Dates: start: 20110401
  3. AMLODIPINE [Suspect]
     Dosage: UNK
     Dates: end: 20110920
  4. PREDNISOLONE [Concomitant]
     Dosage: UNK
  5. PANTOPRAZOLE [Suspect]
     Dosage: UNK
     Dates: start: 20110101
  6. PANTOPRAZOLE [Suspect]
     Dosage: UNK
     Dates: end: 20110919
  7. HYPERIUM [Suspect]
     Dosage: UNK
     Dates: start: 20091001

REACTIONS (1)
  - NEUTROPENIA [None]
